FAERS Safety Report 4854761-8 (Version None)
Quarter: 2005Q4

REPORT INFORMATION
  Report Type: 
  Country: None (occurrence: None)
  Receive Date: 20051215
  Receipt Date: 20051206
  Transmission Date: 20060501
  Serious: Yes (Hospitalization)
  Sender: FDA-Public Use
  Company Number: FR-GLAXOSMITHKLINE-B0403460A

PATIENT
  Age: 35 Year
  Sex: Female

DRUGS (1)
  1. ZYBAN [Suspect]
     Dosage: 60TAB SINGLE DOSE
     Route: 048
     Dates: start: 20051009, end: 20051009

REACTIONS (6)
  - COGWHEEL RIGIDITY [None]
  - EXTRAPYRAMIDAL DISORDER [None]
  - HYPOKALAEMIA [None]
  - INTENTIONAL OVERDOSE [None]
  - PUPIL FIXED [None]
  - TREMOR [None]
